FAERS Safety Report 10258640 (Version 1)
Quarter: 2014Q2

REPORT INFORMATION
  Report Type: Spontaneous
  Country: ES (occurrence: ES)
  Receive Date: 20140625
  Receipt Date: 20140625
  Transmission Date: 20141212
  Serious: Yes (Hospitalization)
  Sender: FDA-Public Use
  Company Number: ES-SA-2014SA078624

PATIENT
  Age: 84 Year
  Sex: Female

DRUGS (6)
  1. CLEXANE [Suspect]
     Indication: THROMBOSIS PROPHYLAXIS
     Dosage: 40MG
     Route: 058
     Dates: start: 20130814, end: 20130822
  2. PANTOPRAZOLE [Suspect]
     Indication: PROPHYLAXIS AGAINST GASTROINTESTINAL ULCER
     Dosage: 40MG
     Route: 042
     Dates: start: 20130814, end: 20130822
  3. PARACETAMOL [Suspect]
     Indication: PELVIC FRACTURE
     Dosage: 1GR/8H
     Route: 042
     Dates: start: 20130814, end: 20130822
  4. METAMIZOLE [Suspect]
     Indication: PAIN
     Dosage: 2GR/8H
     Route: 042
     Dates: start: 20130814, end: 20130820
  5. ATORVASTATIN [Concomitant]
     Indication: DYSLIPIDAEMIA
     Dosage: 0-0-1
     Route: 048
     Dates: start: 2011
  6. CHLORTHALIDONE [Concomitant]
     Dosage: 1-0-0
     Route: 048
     Dates: start: 2008

REACTIONS (1)
  - Hepatitis [Recovered/Resolved]
